FAERS Safety Report 6855150-7 (Version None)
Quarter: 2010Q3

REPORT INFORMATION
  Report Type: 
  Country: None (occurrence: None)
  Receive Date: 20100717
  Receipt Date: 20081226
  Transmission Date: 20110219
  Serious: No
  Sender: FDA-Public Use
  Company Number: US-PFIZER INC-2007101447

PATIENT
  Sex: Male
  Weight: 78.181 kg

DRUGS (4)
  1. CHANTIX [Suspect]
     Indication: SMOKING CESSATION THERAPY
     Dosage: 1 MG, 2X/DAY
     Dates: start: 20070801, end: 20080101
  2. XANAX [Suspect]
  3. NICOTROL [Suspect]
     Indication: SMOKING CESSATION THERAPY
     Dates: start: 20081201
  4. PERCOCET [Concomitant]

REACTIONS (7)
  - DRUG INEFFECTIVE [None]
  - EYE PAIN [None]
  - FACIAL PAIN [None]
  - HEADACHE [None]
  - NIGHTMARE [None]
  - PHOTOPHOBIA [None]
  - SLEEP DISORDER [None]
